FAERS Safety Report 9427864 (Version 1)
Quarter: 2013Q3

REPORT INFORMATION
  Report Type: Spontaneous
  Country: US (occurrence: US)
  Receive Date: 20130730
  Receipt Date: 20130730
  Transmission Date: 20140515
  Serious: Yes (Other)
  Sender: FDA-Public Use
  Company Number: US-PFIZER INC-2013221371

PATIENT
  Sex: Female

DRUGS (1)
  1. LYRICA [Suspect]
     Dosage: UNK
     Dates: start: 20130723

REACTIONS (8)
  - Aphagia [Unknown]
  - Feeling abnormal [Unknown]
  - Diarrhoea [Unknown]
  - Flushing [Unknown]
  - Pyrexia [Unknown]
  - Chills [Unknown]
  - Abdominal pain upper [Unknown]
  - Flatulence [Unknown]
